FAERS Safety Report 7694681-7 (Version None)
Quarter: 2011Q3

REPORT INFORMATION
  Report Type: 
  Country: None (occurrence: None)
  Receive Date: 20110816
  Receipt Date: 20110728
  Transmission Date: 20111222
  Serious: Yes (Hospitalization)
  Sender: FDA-Public Use
  Company Number: 3005444934-2011-00001

PATIENT
  Age: 67 Year
  Sex: Male
  Weight: 90.7194 kg

DRUGS (3)
  1. DISULFIRAM [Suspect]
  2. ENALAPRIL MALEATE [Suspect]
  3. CLONIDINE [Suspect]

REACTIONS (9)
  - DIZZINESS [None]
  - SPEECH DISORDER [None]
  - PAIN IN EXTREMITY [None]
  - SWOLLEN TONGUE [None]
  - LIP SWELLING [None]
  - SWELLING FACE [None]
  - PHARYNGEAL OEDEMA [None]
  - OEDEMA MOUTH [None]
  - JOINT SWELLING [None]
